FAERS Safety Report 9544115 (Version 2)
Quarter: 2013Q4

REPORT INFORMATION
  Report Type: Spontaneous
  Country: US (occurrence: US)
  Receive Date: 20130923
  Receipt Date: 20131014
  Transmission Date: 20140711
  Serious: Yes (Other)
  Sender: FDA-Public Use
  Company Number: US-BRISTOL-MYERS SQUIBB COMPANY-19369537

PATIENT
  Age: 57 Year
  Sex: Male

DRUGS (12)
  1. BYDUREON [Suspect]
     Indication: TYPE 2 DIABETES MELLITUS
     Route: 058
     Dates: start: 20130301, end: 20130723
  2. METFORMIN [Concomitant]
  3. LISINOPRIL + HCTZ [Concomitant]
     Dosage: 1DF:20/25MG
  4. OXYCODONE [Concomitant]
  5. ASPIRIN [Concomitant]
  6. OMEPRAZOLE [Concomitant]
     Dosage: 1DF:20 UNITS NOS
  7. SIMVASTATIN [Concomitant]
     Dosage: 1DF:40 UNITS NOS
  8. AMLODIPINE [Concomitant]
  9. FENOFIBRATE [Concomitant]
  10. LABETALOL [Concomitant]
     Dosage: 1DF:300 UNITS NOS
  11. ZETIA [Concomitant]
  12. LORAZEPAM [Concomitant]
     Dosage: 1DF:0.5 UNITS NOS

REACTIONS (1)
  - Adenocarcinoma pancreas [Unknown]
